FAERS Safety Report 12646304 (Version 1)
Quarter: 2016Q3

REPORT INFORMATION
  Report Type: Spontaneous
  Country: US (occurrence: US)
  Receive Date: 20160812
  Receipt Date: 20160812
  Transmission Date: 20161109
  Serious: Yes (Other)
  Sender: FDA-Public Use
  Company Number: US-009507513-1608USA001612

PATIENT
  Age: 66 Year
  Sex: Male

DRUGS (1)
  1. SINEMET [Suspect]
     Active Substance: CARBIDOPA\LEVODOPA
     Indication: PARKINSON^S DISEASE
     Dosage: 25 MG /100 MG, 9 PILLS, 6 TIMES DAILY
     Route: 048
     Dates: start: 20160728, end: 20160731

REACTIONS (4)
  - Seizure [Recovering/Resolving]
  - Prescribed overdose [Unknown]
  - Freezing phenomenon [Recovering/Resolving]
  - Feeling abnormal [Unknown]

NARRATIVE: CASE EVENT DATE: 201607
